FAERS Safety Report 7001838-7 (Version None)
Quarter: 2010Q3

REPORT INFORMATION
  Report Type: 
  Country: None (occurrence: None)
  Receive Date: 20100916
  Receipt Date: 20100903
  Transmission Date: 20110219
  Serious: Yes (Life-Threatening, Hospitalization, Other)
  Sender: FDA-Public Use
  Company Number: 2009AC000227

PATIENT
  Age: 75 Year
  Sex: Female

DRUGS (16)
  1. DIGOXIN [Suspect]
     Dosage: PO
     Route: 048
     Dates: start: 20011108
  2. DIGOXIN [Suspect]
     Dosage: 0.25 MG; QD; PO
     Route: 048
     Dates: start: 20050118, end: 20050419
  3. DIGOXIN [Suspect]
     Dosage: 0.125 MG; QD; PO
     Route: 048
     Dates: start: 20050823, end: 20060313
  4. DIGOXIN [Suspect]
     Dosage: 0.125 MG; QOD; PO
     Route: 048
     Dates: start: 20060313, end: 20080414
  5. COUMADIN [Concomitant]
  6. MAXZIDE [Concomitant]
  7. OXYBUTYNIN [Concomitant]
  8. ULTRACET [Concomitant]
  9. OS-CAL [Concomitant]
  10. FORTEO [Concomitant]
  11. VITAMIN D [Concomitant]
  12. LISINOPRIL [Concomitant]
  13. OXYGEN [Concomitant]
  14. METOPROLOL TARTRATE [Concomitant]
  15. ATENOLOL [Concomitant]
  16. FUROSEMIDE [Concomitant]

REACTIONS (41)
  - ANAEMIA [None]
  - ANHEDONIA [None]
  - ANXIETY [None]
  - ATRIAL FIBRILLATION [None]
  - ATRIOVENTRICULAR BLOCK SECOND DEGREE [None]
  - BLOOD CHLORIDE DECREASED [None]
  - BREAST CANCER [None]
  - CARDIAC FAILURE CONGESTIVE [None]
  - CARDIOACTIVE DRUG LEVEL INCREASED [None]
  - CATARACT OPERATION [None]
  - CONFUSIONAL STATE [None]
  - CONVULSION [None]
  - DEHYDRATION [None]
  - DEMENTIA [None]
  - DILATATION VENTRICULAR [None]
  - DRUG INTERACTION [None]
  - EAR PAIN [None]
  - ECONOMIC PROBLEM [None]
  - EMBOLIC STROKE [None]
  - FALL [None]
  - GAIT DISTURBANCE [None]
  - HEART RATE IRREGULAR [None]
  - HYPONATRAEMIA [None]
  - INCORRECT DOSE ADMINISTERED [None]
  - INJURY [None]
  - OVERDOSE [None]
  - OXYGEN SATURATION DECREASED [None]
  - PAIN [None]
  - POSTOPERATIVE THROMBOSIS [None]
  - PRODUCT QUALITY ISSUE [None]
  - PULMONARY HYPERTENSION [None]
  - RED BLOOD CELL COUNT DECREASED [None]
  - SICK SINUS SYNDROME [None]
  - SKIN ULCER [None]
  - SLEEP APNOEA SYNDROME [None]
  - SOCIAL PROBLEM [None]
  - SPEECH DISORDER [None]
  - THERAPEUTIC AGENT TOXICITY [None]
  - TREATMENT NONCOMPLIANCE [None]
  - URINARY TRACT INFECTION [None]
  - WEIGHT DECREASED [None]
